FAERS Safety Report 9733745 (Version 1)
Quarter: 2013Q4

REPORT INFORMATION
  Report Type: Spontaneous
  Country: FR (occurrence: FR)
  Receive Date: 20131205
  Receipt Date: 20131205
  Transmission Date: 20140711
  Serious: Yes (Hospitalization, Other)
  Sender: FDA-Public Use
  Company Number: FR-UCBSA-104492

PATIENT
  Age: 35 Year
  Sex: Female

DRUGS (4)
  1. VIMPAT [Suspect]
     Indication: PARTIAL SEIZURES
     Dosage: 50 MG FILM COATED TABLET
     Route: 048
     Dates: start: 20120730, end: 20130613
  2. ZEBINIX [Suspect]
     Indication: PARTIAL SEIZURES
     Route: 048
     Dates: start: 20130521, end: 20130611
  3. DEPAKINE CHRONO [Suspect]
     Indication: PARTIAL SEIZURES
     Route: 048
     Dates: end: 20130619
  4. GARDENAL [Concomitant]
     Indication: PARTIAL SEIZURES
     Route: 048

REACTIONS (5)
  - Agranulocytosis [Recovered/Resolved]
  - Thrombocytopenia [Recovered/Resolved]
  - Pyrexia [Recovered/Resolved]
  - Rash morbilliform [Recovered/Resolved]
  - Systemic inflammatory response syndrome [Recovered/Resolved]
